FAERS Safety Report 14169922 (Version 2)
Quarter: 2018Q1

REPORT INFORMATION
  Report Type: Spontaneous
  Country: US (occurrence: US)
  Receive Date: 20171108
  Receipt Date: 20180124
  Transmission Date: 20180508
  Serious: Yes (Other)
  Sender: FDA-Public Use
  Company Number: US-MYLANLABS-2017M1071572

PATIENT
  Age: 12 Year

DRUGS (1)
  1. CLOZAPINE. [Suspect]
     Active Substance: CLOZAPINE
     Indication: SCHIZOPHRENIA
     Dosage: 175 MG, UNK

REACTIONS (6)
  - Norepinephrine increased [Unknown]
  - Normetanephrine urine increased [Unknown]
  - Product use issue [Not Recovered/Not Resolved]
  - Pseudophaeochromocytoma [Recovered/Resolved]
  - Tachycardia [Unknown]
  - Hypertension [Unknown]
